FAERS Safety Report 7170798-0 (Version None)
Quarter: 2010Q4

REPORT INFORMATION
  Report Type: 
  Country: None (occurrence: None)
  Receive Date: 20101217
  Receipt Date: 20101213
  Transmission Date: 20110411
  Serious: Yes (Hospitalization, Other)
  Sender: FDA-Public Use
  Company Number: FR-AMGEN-QUU385732

PATIENT

DRUGS (6)
  1. ARANESP [Suspect]
     Indication: ANAEMIA OF MALIGNANT DISEASE
     Dosage: UNK UNK, QWK
     Route: 058
     Dates: start: 20090818
  2. GEMCITABINE [Concomitant]
     Dosage: 1000 MG/M2, UNK
     Route: 042
     Dates: start: 20090818, end: 20091019
  3. OXALIPLATIN [Concomitant]
     Dosage: 100 MG/M2, UNK
     Route: 042
     Dates: start: 20090818, end: 20091019
  4. RITUXIMAB [Concomitant]
     Dosage: 375 MG/M2, UNK
     Route: 042
     Dates: start: 20090818, end: 20091019
  5. METHYLPREDNISOLONE [Concomitant]
     Dosage: 60 MG, UNK
     Route: 042
     Dates: start: 20090818, end: 20091019
  6. ENOXAPARIN SODIUM [Concomitant]
     Dosage: UNK UNK, UNK
     Route: 058
     Dates: start: 20090619

REACTIONS (3)
  - ANAEMIA [None]
  - APLASIA PURE RED CELL [None]
  - MYOCARDIAL INFARCTION [None]
